FAERS Safety Report 10494184 (Version 1)
Quarter: 2014Q4

REPORT INFORMATION
  Report Type: Spontaneous
  Country: US (occurrence: None)
  Receive Date: 20141002
  Receipt Date: 20141002
  Transmission Date: 20150528
  Serious: No
  Sender: FDA-Public Use
  Company Number: None

PATIENT
  Age: 43 Year
  Sex: Female

DRUGS (1)
  1. OMNIPAQUE [Suspect]
     Active Substance: IOHEXOL

REACTIONS (4)
  - Erythema [None]
  - Pharyngeal oedema [None]
  - Throat irritation [None]
  - Urticaria [None]

NARRATIVE: CASE EVENT DATE: 20140930
